FAERS Safety Report 9737515 (Version 2)
Quarter: 2013Q4

REPORT INFORMATION
  Report Type: Report from Study
  Country: ES (occurrence: ES)
  Receive Date: 20131207
  Receipt Date: 20131207
  Transmission Date: 20140711
  Serious: Yes (Hospitalization)
  Sender: FDA-Public Use
  Company Number: ES-AMGEN-ESPCT2012038706

PATIENT
  Age: 52 Year
  Sex: Female

DRUGS (5)
  1. PANITUMUMAB [Suspect]
     Indication: RECTAL CANCER
     Dosage: 6 MG/KG, Q2WK
     Route: 042
     Dates: start: 20120216
  2. FLUOROURACIL [Concomitant]
     Indication: RECTAL CANCER
     Dosage: 1000 MG/M2, QMO
     Route: 042
     Dates: start: 20120216
  3. MITOMICINA C [Concomitant]
     Indication: RECTAL CANCER
     Dosage: 10 MG/M2, QMO
     Route: 042
     Dates: start: 20120216
  4. OMEPRAZOLE [Concomitant]
     Dosage: 20 MG, UNK
     Route: 048
     Dates: start: 20120302
  5. MAGNOGENE [Concomitant]
     Dosage: 53 MG, Q8H
     Route: 048
     Dates: start: 20110502

REACTIONS (1)
  - Diarrhoea [Recovered/Resolved]
